FAERS Safety Report 25103139 (Version 2)
Quarter: 2025Q4

REPORT INFORMATION
  Report Type: Spontaneous
  Country: EU (occurrence: EU)
  Receive Date: 20250321
  Receipt Date: 20251118
  Transmission Date: 20260117
  Serious: Yes (Other)
  Sender: VELOXIS PHARMACEUTICALS
  Company Number: EU-ROCHE-2712017

PATIENT
  Age: 10 Year
  Sex: Male
  Weight: 39 kg

DRUGS (8)
  1. TACROLIMUS [Suspect]
     Active Substance: TACROLIMUS
     Indication: Nephrotic syndrome
     Dosage: UNK
  2. TACROLIMUS [Suspect]
     Active Substance: TACROLIMUS
     Indication: Off label use
  3. OBINUTUZUMAB [Suspect]
     Active Substance: OBINUTUZUMAB
     Indication: Nephrotic syndrome
     Dosage: 700 MILLIGRAM (1000 MG/1.73 M2 OVER 4 H WAS INJECTED AT DAY 0)
  4. DARATUMUMAB [Suspect]
     Active Substance: DARATUMUMAB
     Indication: Nephrotic syndrome
     Dosage: 700 MILLIGRAM (1000 MG/1.73 M2 OVER 4 H)
     Route: 065
  5. METHYLPREDNISOLONE [Concomitant]
     Active Substance: METHYLPREDNISOLONE
     Indication: Premedication
     Dosage: 1 MILLIGRAM/KILOGRAM
     Route: 065
  6. DEXCHLORPHENIRAMINE [Concomitant]
     Active Substance: DEXCHLORPHENIRAMINE
     Indication: Premedication
     Dosage: UNK
  7. ACETAMINOPHEN [Concomitant]
     Active Substance: ACETAMINOPHEN
     Indication: Premedication
     Dosage: 15 MILLIGRAM/KILOGRAM
  8. SULFAMETHOXAZOLE [Concomitant]
     Active Substance: SULFAMETHOXAZOLE
     Indication: Premedication
     Dosage: 800 MILLIGRAM, 0.33 WEEK

REACTIONS (3)
  - Hypogammaglobulinaemia [Unknown]
  - Off label use [Unknown]
  - Off label use [Unknown]
